FAERS Safety Report 7638750-6 (Version None)
Quarter: 2011Q3

REPORT INFORMATION
  Report Type: 
  Country: None (occurrence: None)
  Receive Date: 20110718
  Receipt Date: 20110406
  Transmission Date: 20111222
  Serious: Yes (Hospitalization)
  Sender: FDA-Public Use
  Company Number: 20110406CINRY1921

PATIENT
  Age: 39 Year
  Sex: Female

DRUGS (1)
  1. CINRYZE [Suspect]
     Indication: PRODUCT USED FOR UNKNOWN INDICATION
     Dosage: (1 IN 3 D)
     Dates: start: 20100728

REACTIONS (1)
  - HEREDITARY ANGIOEDEMA [None]
